FAERS Safety Report 24607821 (Version 1)
Quarter: 2024Q4

REPORT INFORMATION
  Report Type: Spontaneous
  Country: CH (occurrence: CH)
  Receive Date: 20241112
  Receipt Date: 20241112
  Transmission Date: 20250115
  Serious: Yes (Death, Hospitalization)
  Sender: ACCORD
  Company Number: None

PATIENT
  Age: 73 Year
  Sex: Female
  Weight: 47 kg

DRUGS (17)
  1. METHOTREXATE SODIUM [Suspect]
     Active Substance: METHOTREXATE SODIUM
     Indication: Psoriatic arthropathy
     Dosage: 12.5 MG SUBCUTANEOUSLY EVERY FRIDAY
     Route: 058
     Dates: start: 20240726
  2. METAMIZOL [Suspect]
     Active Substance: METAMIZOLE SODIUM
     Indication: Product used for unknown indication
     Dosage: 2X500 MG
     Dates: start: 20240729, end: 20240729
  3. FOLIC ACID [Concomitant]
     Active Substance: FOLIC ACID
     Dosage: ON SUNDAYS AND WEDNESDAYS
     Route: 048
  4. CANDESARTAN CILEXETIL [Concomitant]
     Active Substance: CANDESARTAN CILEXETIL
     Dosage: 1-0-0-0 (1 TABLET IN THE MORNING)
     Route: 048
  5. LASIX [Concomitant]
     Active Substance: FUROSEMIDE
     Dosage: 40 MG AS NEEDED
     Route: 048
  6. OXYCONTIN [Concomitant]
     Active Substance: OXYCODONE HYDROCHLORIDE
     Dosage: 10 MG 0-0-1-0 (1 TABLET IN THE EVENING)
     Route: 048
  7. OXYCODONE HYDROCHLORIDE [Concomitant]
     Active Substance: OXYCODONE HYDROCHLORIDE
     Dosage: SOLUTION 10 MG/ML AS NEEDED, MAX. 6 X 10 MG/DAY
     Route: 048
  8. DAFALGAN [Concomitant]
     Active Substance: ACETAMINOPHEN
     Dosage: 1 G AS NEEDED
     Route: 048
  9. VITAMINS [Concomitant]
     Active Substance: VITAMINS
     Dosage: 1-0-0-0 (1 TABLET IN THE MORNING)
     Route: 048
  10. DULOXETINE HYDROCHLORIDE [Concomitant]
     Active Substance: DULOXETINE HYDROCHLORIDE
     Dosage: 60 MG 0-0-1-0 (1 TABLET IN THE EVENING)
     Route: 048
  11. ESOMEPRAZOLE MAGNESIUM [Concomitant]
     Active Substance: ESOMEPRAZOLE MAGNESIUM
     Dosage: 20 MG 1-0-1-0 AS NEEDED (MORNING AND EVENING)
     Route: 048
  12. Calcium carbonate ,Cholecalciferol [Concomitant]
     Dosage: 500/800 CITRON 1-0-0-0 (1 TABLET IN THE MORNING)
     Route: 048
  13. SOTALOL HYDROCHLORIDE [Concomitant]
     Active Substance: SOTALOL HYDROCHLORIDE
     Dosage: 80 MG 1-0-0-0 AND 0.5 MAX 1X/DAY IN RESERVE FOR CARDIAC PALPITATIONS
     Route: 048
  14. PREGABALIN [Concomitant]
     Active Substance: PREGABALIN
     Dosage: 100 MG 2-2-0-2 (2 TABLETS IN THE MORNING, 2 TABLETS IN THE EVENING)
     Route: 048
  15. ZOLPIDEM TARTRATE [Concomitant]
     Active Substance: ZOLPIDEM TARTRATE
     Dosage: 10 MG 1X/DAY AS NEEDED
     Route: 048
  16. EZETIMIBE\ROSUVASTATIN [Concomitant]
     Active Substance: EZETIMIBE\ROSUVASTATIN
     Dosage: 10/20 MG 0-0-1-0 (1 TABLET IN THE EVENING)
     Route: 048
  17. OXYCONTIN [Concomitant]
     Active Substance: OXYCODONE HYDROCHLORIDE
     Dosage: 20 MG 1-1-0-0 (1 TABLET IN THE MORNING AND 1 TABLET IN THE EVENING)
     Route: 048

REACTIONS (1)
  - Pancytopenia [Fatal]

NARRATIVE: CASE EVENT DATE: 20240728
